FAERS Safety Report 10768414 (Version 1)
Quarter: 2015Q1

REPORT INFORMATION
  Report Type: Spontaneous
  Country: GB (occurrence: GB)
  Receive Date: 20150206
  Receipt Date: 20150206
  Transmission Date: 20150721
  Serious: Yes (Hospitalization)
  Sender: FDA-Public Use
  Company Number: GB-ACCORD-028473

PATIENT
  Age: 52 Year
  Sex: Male

DRUGS (2)
  1. AMITRIPTYLINE [Suspect]
     Active Substance: AMITRIPTYLINE
     Indication: PRODUCT USED FOR UNKNOWN INDICATION
  2. LIRAGLUTID [Suspect]
     Active Substance: LIRAGLUTIDE
     Indication: PRODUCT USED FOR UNKNOWN INDICATION
     Route: 058

REACTIONS (13)
  - Apnoea [Recovered/Resolved]
  - Hypophosphataemia [None]
  - Intentional self-injury [None]
  - Generalised tonic-clonic seizure [Recovered/Resolved]
  - Urine osmolarity decreased [None]
  - Metabolic acidosis [Recovered/Resolved]
  - Hypotension [Recovered/Resolved]
  - Ventricular fibrillation [Recovered/Resolved]
  - Suicide attempt [None]
  - Hypokalaemia [None]
  - Overdose [Unknown]
  - Cardiac arrest [Recovered/Resolved]
  - Hypernatraemia [None]
